FAERS Safety Report 19124602 (Version 1)
Quarter: 2021Q2

REPORT INFORMATION
  Report Type: Spontaneous
  Country: US (occurrence: US)
  Receive Date: 20210413
  Receipt Date: 20210413
  Transmission Date: 20210717
  Serious: No
  Sender: FDA-Public Use
  Company Number: US-BAUSCH-BL-2021-011463

PATIENT
  Sex: Male

DRUGS (1)
  1. RETIN?A [Suspect]
     Active Substance: TRETINOIN
     Indication: PRODUCT USED FOR UNKNOWN INDICATION
     Route: 061

REACTIONS (4)
  - Haemoptysis [Unknown]
  - Dyspnoea [Unknown]
  - Hyperhidrosis [Unknown]
  - Influenza [Unknown]
